FAERS Safety Report 8710528 (Version 2)
Quarter: 2013Q4

REPORT INFORMATION
  Report Type: Spontaneous
  Country: US (occurrence: US)
  Receive Date: 20120807
  Receipt Date: 20131101
  Transmission Date: 20140711
  Serious: No
  Sender: FDA-Public Use
  Company Number: US-009507513-1207USA009234

PATIENT
  Age: 56 Year
  Sex: Female

DRUGS (6)
  1. VICTRELIS [Suspect]
     Indication: HEPATITIS C
     Dosage: 800 MG, EVERY 7- 9 HOURS WITH FOOD
     Route: 048
     Dates: start: 20120626
  2. PEGASYS [Suspect]
  3. RIBAPAK [Suspect]
  4. VALACYCLOVIR [Concomitant]
  5. ENJUVIA [Concomitant]
  6. SLEEP AID 25MG CAPLET [COMPOSITION UNSPECIFIED] [Concomitant]

REACTIONS (1)
  - Anaemia [Not Recovered/Not Resolved]
